FAERS Safety Report 5672235-1 (Version None)
Quarter: 2008Q1

REPORT INFORMATION
  Report Type: 
  Country: None (occurrence: None)
  Receive Date: 20080319
  Receipt Date: 20080310
  Transmission Date: 20080703
  Serious: No
  Sender: FDA-Public Use
  Company Number: US-PFIZER INC-2008009596

PATIENT
  Sex: Female
  Weight: 62.727 kg

DRUGS (7)
  1. CHANTIX [Suspect]
     Indication: SMOKING CESSATION THERAPY
     Dates: start: 20071201, end: 20080129
  2. NICOTROL [Suspect]
     Indication: SMOKING CESSATION THERAPY
  3. CLONAZEPAM [Concomitant]
  4. NORTRIPTYLINE HCL [Concomitant]
  5. SYNTHROID [Concomitant]
  6. METOCLOPRAMIDE [Concomitant]
  7. LISINOPRIL [Concomitant]

REACTIONS (1)
  - NO ADVERSE EVENT [None]
